FAERS Safety Report 13527587 (Version 1)
Quarter: 2017Q2

REPORT INFORMATION
  Report Type: Spontaneous
  Country: US (occurrence: US)
  Receive Date: 20170509
  Receipt Date: 20170509
  Transmission Date: 20170830
  Serious: Yes (Other)
  Sender: FDA-Public Use
  Company Number: US-PFIZER INC-2017198462

PATIENT
  Age: 85 Year
  Sex: Female
  Weight: 73 kg

DRUGS (2)
  1. COUMADIN [Concomitant]
     Active Substance: WARFARIN SODIUM
     Indication: ANTICOAGULANT THERAPY
     Dosage: 6 MG, 1X/DAY
  2. LATANOPROST. [Suspect]
     Active Substance: LATANOPROST
     Indication: INTRAOCULAR PRESSURE TEST ABNORMAL
     Dosage: ONE DROP IN BOTH EYES, 1X/DAY (BEDTIME)
     Route: 047

REACTIONS (2)
  - Cataract [Unknown]
  - Tremor [Unknown]
